FAERS Safety Report 6951907-2 (Version None)
Quarter: 2010Q3

REPORT INFORMATION
  Report Type: 
  Country: None (occurrence: None)
  Receive Date: 20100829
  Receipt Date: 20100416
  Transmission Date: 20110219
  Serious: No
  Sender: FDA-Public Use
  Company Number: US-ABBOTT-10P-163-0639846-00

PATIENT
  Sex: Male
  Weight: 88.53 kg

DRUGS (3)
  1. NIASPAN [Suspect]
     Indication: HIGH DENSITY LIPOPROTEIN DECREASED
     Dosage: EVERY EVENING
     Dates: start: 20090601, end: 20090901
  2. NIASPAN [Suspect]
     Indication: LOW DENSITY LIPOPROTEIN INCREASED
     Dosage: EVERY EVENING
     Dates: start: 20090901
  3. AVALIDE [Concomitant]
     Indication: HYPERTENSION

REACTIONS (3)
  - FLUSHING [None]
  - HIGH DENSITY LIPOPROTEIN ABNORMAL [None]
  - LOW DENSITY LIPOPROTEIN INCREASED [None]
